FAERS Safety Report 25960948 (Version 1)
Quarter: 2025Q4

REPORT INFORMATION
  Report Type: Spontaneous
  Country: US (occurrence: US)
  Receive Date: 20251027
  Receipt Date: 20251027
  Transmission Date: 20260117
  Serious: No
  Sender: TOLMAR
  Company Number: US-Tolmar-TLM-2025-07319

PATIENT

DRUGS (4)
  1. ELIGARD [Suspect]
     Active Substance: LEUPROLIDE ACETATE
     Indication: Prostate cancer
     Route: 065
     Dates: start: 20250707
  2. ELIGARD [Suspect]
     Active Substance: LEUPROLIDE ACETATE
     Route: 065
  3. DEVICE [Suspect]
     Active Substance: DEVICE
     Indication: Prostate cancer
  4. NUBEQA [Concomitant]
     Active Substance: DAROLUTAMIDE
     Indication: Prostate cancer
     Dosage: 2 NUBEQA IN THE MORNING AND 2 NUBECLA AT NIGHT

REACTIONS (7)
  - Loss of personal independence in daily activities [Unknown]
  - Anxiety [Unknown]
  - Dysstasia [Unknown]
  - Cardiac disorder [Unknown]
  - Anger [Unknown]
  - Blood pressure fluctuation [Unknown]
  - Hypotension [Unknown]
